FAERS Safety Report 10017328 (Version 2)
Quarter: 2014Q1

REPORT INFORMATION
  Report Type: Spontaneous
  Country: JP (occurrence: JP)
  Receive Date: 20140318
  Receipt Date: 20140321
  Transmission Date: 20141002
  Serious: Yes (Death)
  Sender: FDA-Public Use
  Company Number: JP-JNJFOC-20140309481

PATIENT
  Sex: 0

DRUGS (1)
  1. FINIBAX [Suspect]
     Indication: PNEUMONIA ASPIRATION
     Dosage: 0.5 G THREE TIMES DAILY
     Route: 041
     Dates: start: 201402, end: 201403

REACTIONS (2)
  - Ileus [Fatal]
  - Muscle spasms [Recovered/Resolved]
